FAERS Safety Report 12402937 (Version 8)
Quarter: 2017Q1

REPORT INFORMATION
  Report Type: Spontaneous
  Country: DE (occurrence: DE)
  Receive Date: 20160525
  Receipt Date: 20170104
  Transmission Date: 20170428
  Serious: Yes (Other)
  Sender: FDA-Public Use
  Company Number: DE-PFIZER INC-2016267522

PATIENT
  Age: 62 Year
  Sex: Female

DRUGS (12)
  1. TAVOR (LORAZEPAM) [Suspect]
     Active Substance: LORAZEPAM
     Indication: BIPOLAR DISORDER
     Dosage: 0.5 DF, 2X/DAY
     Dates: start: 20101123
  2. LAMOTRIGIN [Concomitant]
     Active Substance: LAMOTRIGINE
     Indication: BIPOLAR DISORDER
     Dosage: 150 MG, 2X/DAY 1-0-1
     Dates: start: 20101123
  3. TORASEMID [Concomitant]
     Active Substance: TORSEMIDE
     Dosage: UNK
  4. RAMIPRIL. [Concomitant]
     Active Substance: RAMIPRIL
     Dosage: 5 MG, UNK
     Dates: start: 201407
  5. SIMVASTIN [Concomitant]
     Active Substance: SIMVASTATIN
     Dosage: UNK
     Dates: start: 201407
  6. METOHEXAL SUCC [Concomitant]
     Active Substance: METOPROLOL SUCCINATE
     Dosage: 47.5 MG, UNK
     Dates: start: 201407
  7. QUETIAPIN [Concomitant]
     Active Substance: QUETIAPINE
     Indication: DEPRESSED MOOD
  8. QUETIAPIN [Concomitant]
     Active Substance: QUETIAPINE
     Indication: RESTLESSNESS
     Dosage: 150 MG, 1X/DAY IN THE EVENING
     Dates: start: 20101123
  9. ALDACTONE [Concomitant]
     Active Substance: SPIRONOLACTONE
     Dosage: 25 UNK, UNK
     Dates: start: 201407
  10. QUETIAPIN [Concomitant]
     Active Substance: QUETIAPINE
     Indication: FATIGUE
  11. TORASEMID [Concomitant]
     Active Substance: TORSEMIDE
     Dosage: 10 MG, 1X/DAY 1-0-0
     Dates: start: 201407
  12. TAVOR (LORAZEPAM) [Suspect]
     Active Substance: LORAZEPAM
     Indication: ANXIETY

REACTIONS (3)
  - Dependence [Unknown]
  - Wrong technique in product usage process [Unknown]
  - Cardiac failure [Unknown]
